FAERS Safety Report 8078948-9 (Version None)
Quarter: 2012Q1

REPORT INFORMATION
  Report Type: 
  Country: None (occurrence: None)
  Receive Date: 20120128
  Receipt Date: 20110620
  Transmission Date: 20120608
  Serious: No
  Sender: FDA-Public Use
  Company Number: US-ABBOTT-11P-163-0734043-00

PATIENT
  Sex: Male

DRUGS (6)
  1. ETODOLAC [Concomitant]
     Indication: ARTHRALGIA
     Route: 048
  2. ASPIRIN [Concomitant]
     Indication: PRODUCT USED FOR UNKNOWN INDICATION
     Dosage: DAILY
     Route: 048
  3. CIALIS [Concomitant]
     Indication: PRODUCT USED FOR UNKNOWN INDICATION
     Dosage: DAILY
  4. HYZAAR [Concomitant]
     Indication: BLOOD PRESSURE INCREASED
  5. HUMIRA [Suspect]
     Indication: PSORIASIS
     Dates: start: 20110301
  6. IBUPROFEN [Concomitant]
     Indication: ARTHRALGIA
     Dosage: PRN

REACTIONS (1)
  - PSORIATIC ARTHROPATHY [None]
